FAERS Safety Report 14255159 (Version 1)
Quarter: 2017Q4

REPORT INFORMATION
  Report Type: Spontaneous
  Country: AT (occurrence: AT)
  Receive Date: 20171206
  Receipt Date: 20171206
  Transmission Date: 20180321
  Serious: Yes (Hospitalization, Other)
  Sender: FDA-Public Use
  Company Number: AT-GLAXOSMITHKLINE-AT2017GSK182573

PATIENT
  Sex: Male

DRUGS (1)
  1. NUCALA [Suspect]
     Active Substance: MEPOLIZUMAB
     Indication: PRODUCT USED FOR UNKNOWN INDICATION
     Dosage: UNK, THIRD DOSE OFNUCALA
     Dates: start: 201710, end: 201710

REACTIONS (3)
  - Pleural effusion [Unknown]
  - Cardiac failure congestive [Unknown]
  - Malaise [Unknown]

NARRATIVE: CASE EVENT DATE: 201711
